FAERS Safety Report 11155867 (Version 1)
Quarter: 2015Q2

REPORT INFORMATION
  Report Type: Spontaneous
  Country: BR (occurrence: BR)
  Receive Date: 20150602
  Receipt Date: 20150602
  Transmission Date: 20150821
  Serious: Yes (Hospitalization, Other)
  Sender: FDA-Public Use
  Company Number: BR-GLAXOSMITHKLINE-BR2014GSK029975

PATIENT
  Sex: Female
  Weight: 96 kg

DRUGS (10)
  1. EUTIROX (LEVOTHYROXINE) [Concomitant]
     Indication: HYPOTHYROIDISM
     Dosage: 100 MG, QD
     Route: 048
  2. RIVOTRIL [Concomitant]
     Active Substance: CLONAZEPAM
     Indication: SEDATION
     Dosage: 1 MG, QD
     Route: 048
  3. FRONTAL (ALPRAZOLAM) [Concomitant]
     Active Substance: ALPRAZOLAM
     Indication: SEDATION
     Dosage: 1 MG, QD
     Route: 048
  4. NEXIUM [Concomitant]
     Active Substance: ESOMEPRAZOLE MAGNESIUM
     Indication: GASTRIC DISORDER
     Dosage: 40 MG, QD
     Route: 048
  5. MOTILIUM DOMPERIDONE [Concomitant]
     Indication: GASTROOESOPHAGEAL REFLUX DISEASE
     Dosage: 1 UNK, QD
     Route: 048
  6. RINOSORO(SODIUM CHLORIDE) [Concomitant]
     Indication: NASAL DISORDER
     Dosage: 2 UNK, QD
     Route: 045
  7. SERETIDE [Suspect]
     Active Substance: FLUTICASONE FUROATE\SALMETEROL XINAFOATE
     Indication: ASTHMA
     Dosage: 1 PUFF(S), BID
     Route: 055
  8. MARESIS(SODIUM CHLORIDE) [Concomitant]
     Indication: NASAL DISORDER
     Dosage: 2 UNK, QD
     Route: 045
  9. AVAMYS [Concomitant]
     Active Substance: FLUTICASONE FUROATE
     Indication: RHINITIS ALLERGIC
     Dosage: 2 PUFF(S), QD
     Route: 045
  10. DIGELIV(ALPHA GALACTOSIDASE) [Concomitant]
     Indication: DYSPEPSIA
     Dosage: 1 UNK, QD
     Route: 048

REACTIONS (7)
  - Drug ineffective [Not Recovered/Not Resolved]
  - Influenza [Unknown]
  - Sinusitis [Not Recovered/Not Resolved]
  - Pneumonia [Recovered/Resolved]
  - Dysgeusia [Recovered/Resolved]
  - Movement disorder [Unknown]
  - Product quality issue [Unknown]

NARRATIVE: CASE EVENT DATE: 2014
